FAERS Safety Report 7913584-3 (Version None)
Quarter: 2011Q4

REPORT INFORMATION
  Report Type: 
  Country: None (occurrence: None)
  Receive Date: 20111115
  Receipt Date: 20111111
  Transmission Date: 20120403
  Serious: Yes (Other)
  Sender: FDA-Public Use
  Company Number: US-PFIZER INC-2011143823

PATIENT
  Sex: Male

DRUGS (11)
  1. CHANTIX [Suspect]
     Indication: SMOKING CESSATION THERAPY
     Dosage: 1 MG, UNK
     Dates: start: 20080601, end: 20080801
  2. VALTREX [Concomitant]
     Indication: HIV INFECTION
     Dosage: UNK
     Dates: start: 19980101
  3. EFFEXOR [Concomitant]
     Indication: ANXIETY
  4. NABUMETONE [Concomitant]
     Indication: OSTEOARTHRITIS
     Dosage: UNK
     Dates: start: 20020101
  5. KLONOPIN [Concomitant]
     Indication: ANXIETY
     Dosage: UNK
     Dates: start: 20060101
  6. PROMETHAZINE [Concomitant]
     Indication: NAUSEA
     Dosage: UNK
     Dates: start: 20060101, end: 20090101
  7. CHANTIX [Suspect]
     Dosage: 1 MG, UNK
     Dates: start: 20090601, end: 20090801
  8. ATRIPLA [Concomitant]
     Indication: HIV INFECTION
     Dosage: UNK
     Dates: start: 19980101
  9. SYNTHROID [Concomitant]
     Indication: HYPOTHYROIDISM
     Dosage: UNK
     Dates: start: 20030101
  10. EFFEXOR [Concomitant]
     Indication: DEPRESSION
     Dosage: UNK
     Dates: start: 20060101
  11. PRILOSEC [Concomitant]
     Indication: GASTROOESOPHAGEAL REFLUX DISEASE
     Dosage: UNK
     Dates: start: 20070101

REACTIONS (6)
  - LOSS OF CONSCIOUSNESS [None]
  - SUICIDAL BEHAVIOUR [None]
  - DEPRESSION [None]
  - AGGRESSION [None]
  - VERTIGO [None]
  - ANXIETY [None]
